FAERS Safety Report 5881728-3 (Version None)
Quarter: 2008Q3

REPORT INFORMATION
  Report Type: 
  Country: None (occurrence: None)
  Receive Date: 20080912
  Receipt Date: 20080710
  Transmission Date: 20090109
  Serious: No
  Sender: FDA-Public Use
  Company Number: US-ABBOTT-08P-163-0461974-00

PATIENT
  Sex: Female
  Weight: 81.72 kg

DRUGS (9)
  1. HUMIRA [Suspect]
     Indication: CROHN'S DISEASE
     Dosage: ONCE
     Route: 058
     Dates: start: 20080601
  2. HUMIRA [Suspect]
     Dosage: ONCE
     Route: 058
  3. HUMIRA [Suspect]
     Route: 058
  4. CYANOCOBALAMIN [Concomitant]
     Indication: CROHN'S DISEASE
     Route: 050
  5. LIBRAX [Concomitant]
     Indication: CROHN'S DISEASE
     Route: 048
  6. TINCTURE OF OPIUM [Concomitant]
     Indication: CROHN'S DISEASE
     Route: 048
  7. CODEINE SUL TAB [Concomitant]
     Indication: CROHN'S DISEASE
     Route: 048
  8. PREDNISONE TAB [Concomitant]
     Indication: CROHN'S DISEASE
     Route: 048
     Dates: start: 20080201
  9. IMODIUM [Concomitant]
     Indication: CROHN'S DISEASE
     Dosage: 32-40MG (TOTAL DAILY DOSE) 2MG 4 TBS, 4-5X DAILY
     Route: 048

REACTIONS (1)
  - LARYNGITIS [None]
